FAERS Safety Report 9551950 (Version 3)
Quarter: 2013Q4

REPORT INFORMATION
  Report Type: Report from Study
  Country: CA (occurrence: CA)
  Receive Date: 20130925
  Receipt Date: 20131016
  Transmission Date: 20140711
  Serious: Yes (Hospitalization)
  Sender: FDA-Public Use
  Company Number: CA-JNJFOC-20120613057

PATIENT
  Age: 4 Year
  Sex: Female
  Weight: 24.2 kg

DRUGS (5)
  1. GOLIMUMAB [Suspect]
     Route: 058
  2. GOLIMUMAB [Suspect]
     Indication: JUVENILE IDIOPATHIC ARTHRITIS
     Route: 058
     Dates: start: 20120619
  3. METHOTREXATE [Concomitant]
     Dates: start: 201111
  4. FOLIC ACID [Concomitant]
     Indication: PROPHYLAXIS
     Route: 048
     Dates: start: 20111020
  5. LOSEC [Concomitant]
     Route: 048
     Dates: start: 20110915

REACTIONS (1)
  - Herpes zoster [Recovered/Resolved]
